FAERS Safety Report 14706522 (Version 6)
Quarter: 2019Q1

REPORT INFORMATION
  Report Type: Report from Study
  Country: US (occurrence: US)
  Receive Date: 20180402
  Receipt Date: 20190222
  Transmission Date: 20190417
  Serious: Yes (Other)
  Sender: FDA-Public Use
  Company Number: US-ACTELION-A-NJ2018-170032

PATIENT
  Age: 83 Year
  Sex: Female
  Weight: 52.61 kg

DRUGS (5)
  1. ORENITRAM [Suspect]
     Active Substance: TREPROSTINIL
     Dosage: UNK
     Route: 065
  2. ORENITRAM [Suspect]
     Active Substance: TREPROSTINIL
     Indication: PRODUCT USED FOR UNKNOWN INDICATION
     Route: 065
  3. ADCIRCA [Concomitant]
     Active Substance: TADALAFIL
  4. TYVASO [Concomitant]
     Active Substance: TREPROSTINIL
     Dosage: UNK
     Dates: start: 201809
  5. OPSUMIT [Suspect]
     Active Substance: MACITENTAN
     Indication: PULMONARY HYPERTENSION
     Dosage: 10 MG, QD
     Route: 048

REACTIONS (13)
  - Atrial fibrillation [Unknown]
  - Arthralgia [Unknown]
  - Headache [Unknown]
  - Pneumonia [Recovered/Resolved]
  - Oedema [Unknown]
  - Back pain [Unknown]
  - Neck pain [Recovered/Resolved]
  - Nasopharyngitis [Recovered/Resolved]
  - Dyspnoea [Unknown]
  - Musculoskeletal pain [Recovered/Resolved]
  - Insomnia [Unknown]
  - Peripheral swelling [Unknown]
  - Heart rate increased [Unknown]
